FAERS Safety Report 13191199 (Version 2)
Quarter: 2017Q1

REPORT INFORMATION
  Report Type: Spontaneous
  Country: GB (occurrence: GB)
  Receive Date: 20170207
  Receipt Date: 20170210
  Transmission Date: 20170428
  Serious: Yes (Hospitalization)
  Sender: FDA-Public Use
  Company Number: GB-SUN PHARMACEUTICAL INDUSTRIES LTD-2017RR-132723

PATIENT
  Age: 94 Year
  Sex: Female

DRUGS (10)
  1. TRAMADOL. [Suspect]
     Active Substance: TRAMADOL
     Indication: HEADACHE
     Dosage: 50 MG, TRAMADOL ONE OR TWO FOUR TIMES A DAY AS REQUIRED
     Route: 065
     Dates: start: 2010
  2. QUININE SULPHATE [Suspect]
     Active Substance: QUININE SULFATE
     Indication: PRODUCT USED FOR UNKNOWN INDICATION
     Dosage: 200 MG, QUININE ONE TABLET TO BE TAKEN AT NIGHT AS REQUIRED
     Route: 065
     Dates: start: 2010, end: 20161123
  3. BETAHISTINE DIHYDROCHLORIDE [Concomitant]
     Active Substance: BETAHISTINE
     Indication: PRODUCT USED FOR UNKNOWN INDICATION
     Dosage: 8 MG, NIGHT AND MORNING, ONE
     Route: 065
     Dates: start: 201501
  4. LOSARTAN POTASSIUM. [Concomitant]
     Active Substance: LOSARTAN POTASSIUM
     Indication: PRODUCT USED FOR UNKNOWN INDICATION
     Dosage: 50 MG, MORNING, ONE
     Route: 065
  5. LEVOTHYROXINE SODIUM. [Concomitant]
     Active Substance: LEVOTHYROXINE SODIUM
     Indication: PRODUCT USED FOR UNKNOWN INDICATION
     Dosage: 75 MG, MORNING; (50 AND 25)
     Route: 065
  6. CYCLIZINE [Concomitant]
     Active Substance: CYCLIZINE
     Indication: PRODUCT USED FOR UNKNOWN INDICATION
     Dosage: 50 MG, NIGHT AND MORNING, ONE
     Route: 065
  7. LATANOPROST. [Concomitant]
     Active Substance: LATANOPROST
     Indication: PRODUCT USED FOR UNKNOWN INDICATION
     Dosage: ONE DROP IN EACH EYE  50 MICROGRAMS/ML IN NIGHT
     Route: 065
  8. PARACETAMOL [Concomitant]
     Active Substance: ACETAMINOPHEN
     Indication: HEADACHE
     Dosage: 500 MG, ONE OR TWO FOUR TIMES A DAY AS REQUIRED. NIGHT AND MORNING, TWO
     Route: 065
  9. SIMVASTATIN. [Concomitant]
     Active Substance: SIMVASTATIN
     Indication: PRODUCT USED FOR UNKNOWN INDICATION
     Dosage: 200 MG, NIGHT, DISCONTINUED THE SAME DAY AS QUININE
     Route: 065
     Dates: end: 20161123
  10. OMEPRAZOL [Concomitant]
     Active Substance: OMEPRAZOLE
     Indication: PRODUCT USED FOR UNKNOWN INDICATION
     Dosage: 20 MG, NIGHT AND MORNING, ONE
     Route: 065

REACTIONS (8)
  - Affective disorder [Unknown]
  - Vertigo [Recovering/Resolving]
  - Vision blurred [Recovering/Resolving]
  - Vomiting [Unknown]
  - Tremor [Unknown]
  - Sleep disorder [Unknown]
  - Hallucination [Unknown]
  - Nausea [Unknown]
